FAERS Safety Report 25605158 (Version 1)
Quarter: 2025Q3

REPORT INFORMATION
  Report Type: Spontaneous
  Country: US (occurrence: US)
  Receive Date: 20250725
  Receipt Date: 20250725
  Transmission Date: 20251020
  Serious: Yes (Death, Life-Threatening, Hospitalization)
  Sender: DR REDDYS
  Company Number: None

PATIENT
  Age: 76 Year
  Sex: Female

DRUGS (3)
  1. TACROLIMUS [Suspect]
     Active Substance: TACROLIMUS
     Indication: Immunosuppressant drug therapy
     Dates: start: 2021
  2. MYCOPHENOLATE MOFETIL [Suspect]
     Active Substance: MYCOPHENOLATE MOFETIL
     Indication: Immunosuppressant drug therapy
     Dates: start: 2021
  3. PREDNISONE [Suspect]
     Active Substance: PREDNISONE
     Indication: Immunosuppressant drug therapy
     Dates: start: 2021

REACTIONS (12)
  - Respiratory failure [Fatal]
  - Septic shock [Fatal]
  - Histoplasmosis disseminated [Fatal]
  - Haemophagocytic lymphohistiocytosis [Fatal]
  - Renal failure [Fatal]
  - Pneumonia pseudomonal [Fatal]
  - Enterococcal infection [Fatal]
  - Large intestinal haemorrhage [Fatal]
  - Cytomegalovirus colitis [Fatal]
  - Enterococcal bacteraemia [Fatal]
  - Pneumonia bacterial [Fatal]
  - Multiple organ dysfunction syndrome [Fatal]
